FAERS Safety Report 15204783 (Version 1)
Quarter: 2018Q3

REPORT INFORMATION
  Report Type: Report from Study
  Country: US (occurrence: US)
  Receive Date: 20180726
  Receipt Date: 20180726
  Transmission Date: 20181010
  Serious: Yes (Other)
  Sender: FDA-Public Use
  Company Number: US-JAZZ-2018-US-001328

PATIENT
  Sex: Female

DRUGS (27)
  1. ZOLPIDEM TARTRATE. [Concomitant]
     Active Substance: ZOLPIDEM TARTRATE
  2. XYREM [Suspect]
     Active Substance: SODIUM OXYBATE
     Dosage: 4.5 G, BID
     Route: 048
     Dates: start: 201506
  3. LOSARTAN POTASSIUM. [Concomitant]
     Active Substance: LOSARTAN POTASSIUM
  4. BELSOMRA [Concomitant]
     Active Substance: SUVOREXANT
  5. FLUCONAZOLE. [Concomitant]
     Active Substance: FLUCONAZOLE
  6. IBUPROFEN. [Concomitant]
     Active Substance: IBUPROFEN
  7. TOBRADEX [Concomitant]
     Active Substance: DEXAMETHASONE\TOBRAMYCIN
  8. XYREM [Suspect]
     Active Substance: SODIUM OXYBATE
     Indication: INSOMNIA
     Dosage: 2.25 G, BID
     Route: 048
     Dates: start: 200310, end: 200311
  9. ESTRADIOL. [Concomitant]
     Active Substance: ESTRADIOL
  10. NYSTATIN. [Concomitant]
     Active Substance: NYSTATIN
  11. SALBUTAMOL [Concomitant]
     Active Substance: ALBUTEROL
  12. ALLEGRA ALLERGY [Concomitant]
     Active Substance: FEXOFENADINE HYDROCHLORIDE
  13. ALENDRONATE SODIUM. [Concomitant]
     Active Substance: ALENDRONATE SODIUM
  14. DYMISTA [Concomitant]
     Active Substance: AZELASTINE HYDROCHLORIDE\FLUTICASONE PROPIONATE
  15. FLUTICASONE PROPIONATE. [Concomitant]
     Active Substance: FLUTICASONE PROPIONATE
  16. CLONIDINE HCL [Concomitant]
     Active Substance: CLONIDINE HYDROCHLORIDE
  17. LORAZEPAM. [Concomitant]
     Active Substance: LORAZEPAM
  18. ORPHENADRINE [Concomitant]
     Active Substance: ORPHENADRINE
  19. ATENOLOL. [Concomitant]
     Active Substance: ATENOLOL
  20. RESTASIS [Concomitant]
     Active Substance: CYCLOSPORINE
  21. VITAMIN D3 [Concomitant]
     Active Substance: CHOLECALCIFEROL
  22. XYREM [Suspect]
     Active Substance: SODIUM OXYBATE
     Dosage: DOSE ADJUSTMENTS
     Route: 048
     Dates: start: 200311, end: 201506
  23. CARVEDILOL. [Concomitant]
     Active Substance: CARVEDILOL
  24. DIAZEPAM. [Concomitant]
     Active Substance: DIAZEPAM
  25. RISPERIDONE. [Concomitant]
     Active Substance: RISPERIDONE
  26. TIZANIDINE HCL [Concomitant]
     Active Substance: TIZANIDINE HYDROCHLORIDE
  27. LEVOTHYROXINE. [Concomitant]
     Active Substance: LEVOTHYROXINE

REACTIONS (3)
  - Cerebrovascular accident [Not Recovered/Not Resolved]
  - Feeling abnormal [Unknown]
  - Stress [Unknown]

NARRATIVE: CASE EVENT DATE: 2017
